FAERS Safety Report 25141368 (Version 3)
Quarter: 2025Q3

REPORT INFORMATION
  Report Type: Report from Study
  Country: US (occurrence: US)
  Receive Date: 20250331
  Receipt Date: 20250702
  Transmission Date: 20251020
  Serious: Yes (Hospitalization, Other)
  Sender: Unknown Manufacturer
  Company Number: US-Rhythm Pharmaceuticals, Inc.-2025RHM000078

PATIENT
  Age: 36 Year
  Sex: Male

DRUGS (9)
  1. SETMELANOTIDE [Suspect]
     Active Substance: SETMELANOTIDE
     Indication: Laurence-Moon-Bardet-Biedl syndrome
     Route: 058
     Dates: start: 20250206
  2. SETMELANOTIDE [Suspect]
     Active Substance: SETMELANOTIDE
     Dosage: 3 MILLIGRAM, QD
     Route: 058
  3. Calcium 600 [OTC] [Concomitant]
     Indication: Product used for unknown indication
     Route: 065
  4. Claritin [OTC] [DSC] [Concomitant]
     Indication: Product used for unknown indication
     Route: 065
  5. Multivitamins/Minerals (with ADEK, Folate, Iron) [Concomitant]
     Indication: Product used for unknown indication
     Route: 065
  6. SINGULAIR [Concomitant]
     Active Substance: MONTELUKAST SODIUM
     Indication: Product used for unknown indication
     Route: 065
  7. URSODIOL [Concomitant]
     Active Substance: URSODIOL
     Indication: Product used for unknown indication
     Route: 065
  8. VYVANSE [Concomitant]
     Active Substance: LISDEXAMFETAMINE DIMESYLATE
     Indication: Product used for unknown indication
     Route: 065
  9. WEGOVY [Concomitant]
     Active Substance: SEMAGLUTIDE
     Indication: Product used for unknown indication

REACTIONS (8)
  - Infection [Not Recovered/Not Resolved]
  - Nephrolithiasis [Unknown]
  - Pain [Not Recovered/Not Resolved]
  - Therapeutic product effect decreased [Not Recovered/Not Resolved]
  - Hunger [Not Recovered/Not Resolved]
  - Drug titration error [Recovered/Resolved]
  - Nausea [Recovered/Resolved]
  - Skin hyperpigmentation [Unknown]

NARRATIVE: CASE EVENT DATE: 20250201
